FAERS Safety Report 7604951-6 (Version None)
Quarter: 2011Q3

REPORT INFORMATION
  Report Type: 
  Country: None (occurrence: None)
  Receive Date: 20110713
  Receipt Date: 20110705
  Transmission Date: 20111222
  Serious: Yes (Death)
  Sender: FDA-Public Use
  Company Number: DE-BIOGENIDEC-2011BI024156

PATIENT
  Age: 50 Year
  Sex: Female

DRUGS (4)
  1. AVONEX [Suspect]
     Indication: RELAPSING-REMITTING MULTIPLE SCLEROSIS
     Route: 030
     Dates: start: 20000101, end: 20110601
  2. XEOMIN [Concomitant]
     Indication: PRODUCT USED FOR UNKNOWN INDICATION
     Route: 030
     Dates: end: 20110323
  3. VIVEO [Concomitant]
     Indication: TORTICOLLIS
     Dates: start: 20090330, end: 20110601
  4. VIVEO [Concomitant]
     Indication: MUSCLE SPASTICITY
     Dates: start: 20090330, end: 20110601

REACTIONS (1)
  - DEATH [None]
